FAERS Safety Report 5298290-9 (Version None)
Quarter: 2007Q1

REPORT INFORMATION
  Report Type: 
  Country: None (occurrence: None)
  Receive Date: 20070205
  Receipt Date: 20060405
  Transmission Date: 20070707
  Serious: Yes (Other)
  Sender: FDA-Public Use
  Company Number: US200602001947

PATIENT
  Age: 62 Year
  Sex: Female
  Weight: 51.2 kg

DRUGS (3)
  1. EVISTA [Suspect]
     Indication: OSTEOPOROSIS
     Dosage: 60 MG, ORAL
     Route: 048
  2. CALCIUM (CALCIUM) [Concomitant]
  3. PROTONIX [Concomitant]

REACTIONS (3)
  - MASS [None]
  - MUSCLE SPASMS [None]
  - THROMBOPHLEBITIS SUPERFICIAL [None]
